FAERS Safety Report 7603437-2 (Version None)
Quarter: 2011Q3

REPORT INFORMATION
  Report Type: 
  Country: None (occurrence: None)
  Receive Date: 20110712
  Receipt Date: 20110701
  Transmission Date: 20111222
  Serious: Yes (Death, Hospitalization, Other)
  Sender: FDA-Public Use
  Company Number: RU-PFIZER INC-2011152759

PATIENT
  Age: 61 Year
  Sex: Male

DRUGS (6)
  1. PERINDOPRIL [Concomitant]
     Dosage: UNK
     Dates: start: 20090922
  2. SPIRONOLACTONE [Concomitant]
     Dosage: UNK
     Dates: start: 20090922
  3. AMIODARONE HCL [Suspect]
     Dosage: 200 MG, DAILY
     Route: 048
     Dates: start: 20091130
  4. ACETYLSALICYLIC ACID [Concomitant]
     Dosage: UNK
     Dates: start: 20090922
  5. HYDROCHLOROTHIAZIDE [Concomitant]
     Dosage: UNK
     Dates: start: 20090922
  6. AMIODARONE HCL [Suspect]
     Indication: VENTRICULAR ARRHYTHMIA
     Dosage: LOADING DOSE OF 600 MG DAILY FOR 10 DAYS
     Route: 048

REACTIONS (2)
  - CARDIAC FAILURE [None]
  - SUDDEN DEATH [None]
